FAERS Safety Report 5311607-1 (Version None)
Quarter: 2007Q2

REPORT INFORMATION
  Report Type: 
  Country: None (occurrence: None)
  Receive Date: 20070430
  Receipt Date: 20070420
  Transmission Date: 20071010
  Serious: Yes (Other)
  Sender: FDA-Public Use
  Company Number: NO-AVENTIS-200712090GDDC

PATIENT
  Sex: Male

DRUGS (2)
  1. LANTUS [Suspect]
     Dosage: DOSE: IN THE BEGINNING AT 23:00 LATER AT 07:00 IN THE MORNING
     Route: 058
     Dates: start: 20070108
  2. NOVORAPID [Suspect]
     Dosage: DOSE: 6-10; FREQUENCY: BEFORE MEALS
     Dates: start: 20070108

REACTIONS (2)
  - HALLUCINATION [None]
  - PSYCHIATRIC SYMPTOM [None]
